FAERS Safety Report 16439214 (Version 2)
Quarter: 2019Q3

REPORT INFORMATION
  Report Type: Spontaneous
  Country: MX (occurrence: MX)
  Receive Date: 20190617
  Receipt Date: 20190725
  Transmission Date: 20191004
  Serious: Yes (Death, Hospitalization, Other)
  Sender: FDA-Public Use
  Company Number: MX-AMGEN-MEXSP2019094781

PATIENT
  Age: 72 Year
  Sex: Female
  Weight: 70 kg

DRUGS (2)
  1. METOTREXATE [Concomitant]
     Active Substance: METHOTREXATE SODIUM
     Indication: RHEUMATOID ARTHRITIS
     Dosage: 10 MG, UNK
     Route: 048
     Dates: start: 20061004
  2. ENBREL [Suspect]
     Active Substance: ETANERCEPT
     Indication: RHEUMATOID ARTHRITIS
     Dosage: 50 MILLIGRAM, QWK
     Route: 065
     Dates: start: 20170713

REACTIONS (1)
  - Pancreatitis [Fatal]
